FAERS Safety Report 6545835-4 (Version None)
Quarter: 2010Q1

REPORT INFORMATION
  Report Type: 
  Country: None (occurrence: None)
  Receive Date: 20100121
  Receipt Date: 20100118
  Transmission Date: 20100710
  Serious: Yes (Hospitalization, Other)
  Sender: FDA-Public Use
  Company Number: US-ELI_LILLY_AND_COMPANY-US201001003494

PATIENT
  Sex: Male

DRUGS (1)
  1. HUMATROPE [Suspect]
     Indication: OSTEOPOROSIS
     Dosage: 0.9 MG, DAILY (1/D)
     Dates: start: 20090201

REACTIONS (1)
  - PNEUMONIA [None]
